FAERS Safety Report 8554372-7 (Version None)
Quarter: 2012Q3

REPORT INFORMATION
  Report Type: 
  Country: None (occurrence: None)
  Receive Date: 20120731
  Receipt Date: 20120718
  Transmission Date: 20120928
  Serious: Yes (Other)
  Sender: FDA-Public Use
  Company Number: US-ROCHE-1089595

PATIENT
  Sex: Male

DRUGS (2)
  1. AMNESTEEM [Suspect]
     Indication: PRODUCT USED FOR UNKNOWN INDICATION
     Dates: start: 20050801, end: 20090301
  2. ACCUTANE [Suspect]
     Indication: PRODUCT USED FOR UNKNOWN INDICATION
     Dates: start: 20020601, end: 20050701

REACTIONS (4)
  - CROHN'S DISEASE [None]
  - IRRITABLE BOWEL SYNDROME [None]
  - INFLAMMATORY BOWEL DISEASE [None]
  - COLITIS ULCERATIVE [None]
